FAERS Safety Report 5042024-X (Version None)
Quarter: 2006Q2

REPORT INFORMATION
  Report Type: 
  Country: None (occurrence: None)
  Receive Date: 20060627
  Receipt Date: 20060617
  Transmission Date: 20061013
  Serious: Yes (Hospitalization)
  Sender: FDA-Public Use
  Company Number: 163-20785-06060603

PATIENT
  Age: 56 Year
  Sex: Male
  Weight: 88.6 kg

DRUGS (4)
  1. THALOMID [Suspect]
     Indication: NON-SMALL CELL LUNG CANCER
     Dosage: 200MG STARTING ON DAY 1 WITH WKLY TITRATION OF 100MG UP TO 1000MG MAX 24 MONTH DURATION 21D CYCLE, Q
     Route: 048
     Dates: start: 20050513
  2. PACLITAXEL [Suspect]
     Indication: NON-SMALL CELL LUNG CANCER
     Dosage: 225MG/M^2 OVER 3 HR ON DAY 1 Q 21 DAYS X2, INTRAVENOUS
     Route: 042
  3. CARBOPLATIN [Suspect]
     Indication: NON-SMALL CELL LUNG CANCER
     Dosage: AUC = 6 IV OVER 15-30 MIN ON DAY 1 EVERY 21 D X2
  4. RADIATION THERAPY [Suspect]
     Indication: NON-SMALL CELL LUNG CANCER
     Dosage: XRT=60GY OVER 6 WKS BEGINNING BETWEEN DAYS 43-50

REACTIONS (13)
  - CHILLS [None]
  - FLANK PAIN [None]
  - HEADACHE [None]
  - HYPERGLYCAEMIA [None]
  - HYPOTENSION [None]
  - LUNG INFILTRATION [None]
  - LYMPHOPENIA [None]
  - MALAISE [None]
  - MYALGIA [None]
  - NEUTROPENIA [None]
  - PLEURITIC PAIN [None]
  - PNEUMONITIS [None]
  - PYREXIA [None]
